FAERS Safety Report 18235010 (Version 1)
Quarter: 2020Q3

REPORT INFORMATION
  Report Type: Spontaneous
  Country: US (occurrence: US)
  Receive Date: 20200904
  Receipt Date: 20200904
  Transmission Date: 20201103
  Serious: Yes (Other)
  Sender: FDA-Public Use
  Company Number: US-PURDUE-USA-2020-0164790

PATIENT
  Sex: Male

DRUGS (1)
  1. OXYCODONE HYDROCHLORIDE (SIMILAR TO NDA 22?272) [Suspect]
     Active Substance: OXYCODONE HYDROCHLORIDE
     Indication: PAIN
     Dosage: UNK
     Route: 065

REACTIONS (7)
  - Drug withdrawal syndrome [Unknown]
  - Depression [Unknown]
  - Drug dependence [Unknown]
  - Anxiety [Unknown]
  - Insomnia [Unknown]
  - Parkinson^s disease [Not Recovered/Not Resolved]
  - Feeling abnormal [Unknown]
